FAERS Safety Report 17483759 (Version 1)
Quarter: 2020Q1

REPORT INFORMATION
  Report Type: Spontaneous
  Country: US (occurrence: US)
  Receive Date: 20200219
  Receipt Date: 20200219
  Transmission Date: 20200409
  Serious: No
  Sender: FDA-Public Use
  Company Number: None

PATIENT
  Age: 70 Year
  Sex: Male

DRUGS (1)
  1. NOVAREL [Suspect]
     Active Substance: CHORIOGONADOTROPIN ALFA
     Route: 030
     Dates: start: 201907

REACTIONS (2)
  - Therapy cessation [None]
  - Asthenia [None]

NARRATIVE: CASE EVENT DATE: 20200129
